FAERS Safety Report 8763392 (Version 1)
Quarter: 2012Q4

REPORT INFORMATION
  Report Type: 
  Country: US (occurrence: US)
  Receive Date: 20120831
  Receipt Date: 20120831
  Transmission Date: 20130627
  Serious: Yes (Disabling)
  Sender: FDA-Public Use
  Company Number: US-009507513-1208USA000230

PATIENT

DRUGS (1)
  1. ZOCOR [Suspect]
     Dosage: 20 mg, UNK

REACTIONS (2)
  - Fatigue [Unknown]
  - Headache [Unknown]
